FAERS Safety Report 5836345-8 (Version None)
Quarter: 2008Q3

REPORT INFORMATION
  Report Type: 
  Country: None (occurrence: None)
  Receive Date: 20080801
  Receipt Date: 20080404
  Transmission Date: 20090109
  Serious: Yes (Hospitalization)
  Sender: FDA-Public Use
  Company Number: PHEH2008US02912

PATIENT
  Age: 72 Year
  Sex: Male
  Weight: 94.3 kg

DRUGS (9)
  1. EXELON [Suspect]
     Dosage: 4.6 MG, ONCE/SINGLE, TRANSDERMAL
     Route: 062
     Dates: start: 20080306, end: 20080307
  2. CADUET (AMLODIPINE BESILATE, ATORVASTATIN CALCIUM) [Concomitant]
  3. COREG [Concomitant]
  4. LEXAPRO [Concomitant]
  5. PLAVIX [Concomitant]
  6. ZETIA [Concomitant]
  7. METFORMIN HCL [Concomitant]
  8. SEROQUEL [Concomitant]
  9. NEURONTIN [Concomitant]

REACTIONS (7)
  - AGITATION [None]
  - CHEST PAIN [None]
  - CONFUSIONAL STATE [None]
  - DELUSION [None]
  - IRRITABILITY [None]
  - MYOCARDIAL INFARCTION [None]
  - TROPONIN INCREASED [None]
